FAERS Safety Report 16154763 (Version 2)
Quarter: 2019Q2

REPORT INFORMATION
  Report Type: Spontaneous
  Country: US (occurrence: US)
  Receive Date: 20190403
  Receipt Date: 20190613
  Transmission Date: 20190711
  Serious: Yes (Other)
  Sender: FDA-Public Use
  Company Number: US-BAUSCH-BL-2019-009545

PATIENT
  Age: 88 Year
  Sex: Female

DRUGS (1)
  1. INSTA-GLUCOSE [Suspect]
     Active Substance: DEXTROSE
     Indication: BLOOD GLUCOSE DECREASED
     Dosage: START DATE: MANY YEARS AGO, FREQUENCY: AS NEEDED (USED UP TO 4 TUBES)
     Route: 048

REACTIONS (4)
  - Condition aggravated [Unknown]
  - Type 1 diabetes mellitus [Unknown]
  - Shock hypoglycaemic [Unknown]
  - Therapeutic product effect incomplete [Unknown]
